FAERS Safety Report 9152133 (Version 1)
Quarter: 2013Q1

REPORT INFORMATION
  Report Type: Spontaneous
  Country: US (occurrence: US)
  Receive Date: 20130308
  Receipt Date: 20130308
  Transmission Date: 20140127
  Serious: Yes (Other)
  Sender: FDA-Public Use
  Company Number: US-FRI-1000043091

PATIENT
  Sex: Male

DRUGS (1)
  1. NAMENDA [Suspect]
     Indication: PARKINSON^S DISEASE
     Dosage: 20 MG
     Route: 048

REACTIONS (3)
  - Mental impairment [Not Recovered/Not Resolved]
  - Dementia [Not Recovered/Not Resolved]
  - Off label use [Not Recovered/Not Resolved]
